FAERS Safety Report 5008480-8 (Version None)
Quarter: 2006Q2

REPORT INFORMATION
  Report Type: 
  Country: None (occurrence: None)
  Receive Date: 20060523
  Receipt Date: 20060424
  Transmission Date: 20061013
  Serious: Yes (Death, Hospitalization)
  Sender: FDA-Public Use
  Company Number: FR-AVENTIS-200611536FR

PATIENT
  Age: 66 Year
  Sex: Male

DRUGS (3)
  1. TAXOTERE [Suspect]
     Indication: PROSTATE CANCER
     Route: 042
     Dates: start: 20051130, end: 20051130
  2. TAXOTERE [Suspect]
     Route: 042
     Dates: start: 20051109, end: 20051109
  3. TAXOTERE [Suspect]
     Route: 042
     Dates: start: 20051018, end: 20051018

REACTIONS (6)
  - ACUTE RESPIRATORY DISTRESS SYNDROME [None]
  - CANDIDA SEPSIS [None]
  - CARDIAC ARREST [None]
  - MYCOPLASMA INFECTION [None]
  - PNEUMONITIS [None]
  - PNEUMOTHORAX [None]
